FAERS Safety Report 11457398 (Version 1)
Quarter: 2015Q3

REPORT INFORMATION
  Report Type: Spontaneous
  Country: US (occurrence: US)
  Receive Date: 20150904
  Receipt Date: 20150904
  Transmission Date: 20151125
  Serious: Yes (Other)
  Sender: FDA-Public Use
  Company Number: US-JNJFOC-20150819946

PATIENT
  Age: 40 Year
  Sex: Female
  Weight: 56.7 kg

DRUGS (3)
  1. IMODIUM MULTI-SYMPTOM RELIEF [Suspect]
     Active Substance: DIMETHICONE\LOPERAMIDE HYDROCHLORIDE
     Route: 048
  2. TYLENOL [Concomitant]
     Active Substance: ACETAMINOPHEN
     Route: 065
  3. IMODIUM MULTI-SYMPTOM RELIEF [Suspect]
     Active Substance: DIMETHICONE\LOPERAMIDE HYDROCHLORIDE
     Indication: IRRITABLE BOWEL SYNDROME
     Dosage: 2 TABLETS IN THE MORNING AND 1 TABLET LATER IN THE DAY
     Route: 048
     Dates: start: 20150824

REACTIONS (9)
  - Wrong technique in product usage process [Unknown]
  - Choking [Recovered/Resolved]
  - Throat irritation [None]
  - Product coating issue [Unknown]
  - Foreign body [Unknown]
  - Burning sensation [Unknown]
  - Product quality issue [Unknown]
  - Product solubility abnormal [Unknown]
  - Retching [Unknown]

NARRATIVE: CASE EVENT DATE: 20150824
